FAERS Safety Report 7492812-5 (Version None)
Quarter: 2011Q2

REPORT INFORMATION
  Report Type: 
  Country: None (occurrence: None)
  Receive Date: 20110512
  Receipt Date: 20110509
  Transmission Date: 20111010
  Serious: Yes (Hospitalization)
  Sender: FDA-Public Use
  Company Number: WAES 1103USA00984

PATIENT
  Age: 79 Year
  Sex: Male
  Weight: 77.1115 kg

DRUGS (21)
  1. HYDROCORTISONE [Concomitant]
  2. KLOR-CON [Concomitant]
  3. ACYCLOVIR [Concomitant]
  4. COLLAGENASE CLOSTRIDIUM HISTOLYT [Concomitant]
  5. DEXAMETHASONE [Concomitant]
  6. ANDRODERM [Concomitant]
  7. ZOFRAN [Concomitant]
  8. AVASTIN [Suspect]
     Indication: GLIOBLASTOMA MULTIFORME
     Dosage: 773 MG, 2WK, 25DY, IV
     Route: 042
     Dates: start: 20110201, end: 20110203
  9. AVASTIN [Suspect]
     Indication: GLIOBLASTOMA MULTIFORME
     Dosage: 773 MG, 2WK, 25DY, IV
     Route: 042
     Dates: start: 20110210, end: 20110225
  10. TEMODAR [Suspect]
     Indication: GLIOBLASTOMA MULTIFORME
     Dosage: 100 MG, DAILY, PO
     Route: 048
     Dates: start: 20110210, end: 20110225
  11. TEMODAR [Suspect]
     Indication: GLIOBLASTOMA MULTIFORME
     Dosage: 100 MG, DAILY, PO
     Route: 048
     Dates: start: 20110201, end: 20110203
  12. CORTEF [Concomitant]
  13. DECADRON [Concomitant]
  14. LOVENOX [Concomitant]
  15. ULTRAM [Concomitant]
  16. ALBUTEROL SULFATE AUTOHALER [Concomitant]
  17. CAP VORINOSTAT [Suspect]
     Indication: GLIOBLASTOMA MULTIFORME
     Dosage: 400 MG, DAILY, PO
     Route: 048
     Dates: start: 20110201, end: 20110203
  18. CAP VORINOSTAT [Suspect]
     Indication: GLIOBLASTOMA MULTIFORME
     Dosage: 400 MG, DAILY, PO
     Route: 048
     Dates: start: 20110201, end: 20110216
  19. ENOXAPARIN SODIUM [Concomitant]
  20. VITAMINS [Concomitant]
  21. KEPPRA [Concomitant]

REACTIONS (9)
  - PNEUMONIA [None]
  - DEEP VEIN THROMBOSIS [None]
  - HEADACHE [None]
  - CONFUSIONAL STATE [None]
  - URINARY TRACT INFECTION [None]
  - ASTHENIA [None]
  - GRAND MAL CONVULSION [None]
  - CHILLS [None]
  - CLOSTRIDIUM DIFFICILE COLITIS [None]
